FAERS Safety Report 13453464 (Version 1)
Quarter: 2017Q2

REPORT INFORMATION
  Report Type: Spontaneous
  Country: CO (occurrence: CO)
  Receive Date: 20170418
  Receipt Date: 20170418
  Transmission Date: 20170830
  Serious: Yes (Death, Hospitalization, Other)
  Sender: FDA-Public Use
  Company Number: CO-BAXTER-2017BAX015894

PATIENT
  Age: 74 Year
  Sex: Male
  Weight: 73.3 kg

DRUGS (6)
  1. DIANEAL PD-2 WITH DEXTROSE [Suspect]
     Active Substance: CALCIUM CHLORIDE\DEXTROSE\MAGNESIUM CHLORIDE\SODIUM CHLORIDE\SODIUM LACTATE
     Indication: PERITONEAL DIALYSIS
  2. ACETAMINOPHEN. [Concomitant]
     Active Substance: ACETAMINOPHEN
     Indication: PRODUCT USED FOR UNKNOWN INDICATION
     Route: 065
  3. ATORVASTATIN [Concomitant]
     Active Substance: ATORVASTATIN
     Indication: PRODUCT USED FOR UNKNOWN INDICATION
     Route: 065
  4. APIXABAN [Concomitant]
     Active Substance: APIXABAN
     Indication: CARDIAC FAILURE
     Route: 065
  5. AMIODARONE [Concomitant]
     Active Substance: AMIODARONE
     Indication: CARDIAC FAILURE
     Route: 065
  6. DIANEAL PD-2 WITH DEXTROSE [Suspect]
     Active Substance: CALCIUM CHLORIDE\DEXTROSE\MAGNESIUM CHLORIDE\SODIUM CHLORIDE\SODIUM LACTATE
     Indication: CHRONIC KIDNEY DISEASE
     Dosage: 2 BAG
     Route: 033

REACTIONS (5)
  - Bradycardia [Not Recovered/Not Resolved]
  - Peripheral vascular disorder [Not Recovered/Not Resolved]
  - Skin ulcer [Unknown]
  - Hypotension [Not Recovered/Not Resolved]
  - Cardiovascular disorder [Fatal]

NARRATIVE: CASE EVENT DATE: 20170312
